FAERS Safety Report 12781171 (Version 2)
Quarter: 2017Q1

REPORT INFORMATION
  Report Type: Spontaneous
  Country: JP (occurrence: JP)
  Receive Date: 20160926
  Receipt Date: 20170105
  Transmission Date: 20170428
  Serious: Yes (Hospitalization)
  Sender: FDA-Public Use
  Company Number: JP-TEVA-2016-001551

PATIENT
  Sex: Female

DRUGS (1)
  1. BENET (RISEDRONATE SODIUM) TABLET, 75 MG [Suspect]
     Active Substance: RISEDRONATE SODIUM
     Indication: OSTEOPOROSIS
     Dosage: 2.5 MILLIGRAM DAILY;
     Route: 048

REACTIONS (3)
  - Atypical femur fracture [Unknown]
  - Fall [Recovered/Resolved]
  - Pathological fracture [Unknown]

NARRATIVE: CASE EVENT DATE: 2016
